FAERS Safety Report 24533871 (Version 1)
Quarter: 2024Q4

REPORT INFORMATION
  Report Type: Spontaneous
  Country: NL (occurrence: NL)
  Receive Date: 20241022
  Receipt Date: 20241022
  Transmission Date: 20250115
  Serious: Yes (Hospitalization)
  Sender: CHEPLAPHARM
  Company Number: None

PATIENT
  Age: 60 Year
  Sex: Female

DRUGS (12)
  1. OLANZAPINE [Suspect]
     Active Substance: OLANZAPINE
     Indication: Schizoaffective disorder
     Dosage: 1 INJECTION 1 X EVERY 4 WEEKS
     Dates: start: 20000101
  2. OLANZAPINE [Suspect]
     Active Substance: OLANZAPINE
     Indication: Schizoaffective disorder
     Dosage: SUSPENSION FOR INJECTION, 405 MG (MILLIGRAMS)
  3. HALOPERIDOL [Suspect]
     Active Substance: HALOPERIDOL
     Indication: Schizoaffective disorder
     Dosage: 1X PER DAY 1 PIECE?DAILY DOSE: 1 MILLIGRAM
     Dates: start: 20230501, end: 20240201
  4. Biperideen [Concomitant]
     Dosage: TABLET, 2 MG (MILLIGRAM)
  5. GLICLAZIDE [Concomitant]
     Active Substance: GLICLAZIDE
     Dosage: CONTROLLED-RELEASE TABLET, 30 MG (MILLIGRAMS)
  6. GLYCOPYRRONIUM [Concomitant]
     Active Substance: GLYCOPYRRONIUM
     Dosage: TABLET, 1 MG (MILLIGRAM)
  7. LITHIUM CARBONATE [Concomitant]
     Active Substance: LITHIUM CARBONATE
     Dosage: CAPSULE, 100 MG (MILLIGRAM)
  8. LITHIUM CARBONATE [Concomitant]
     Active Substance: LITHIUM CARBONATE
     Dosage: CONTROLLED-RELEASE TABLET, 400 MG (MILLIGRAMS)
  9. METFORMIN [Concomitant]
     Active Substance: METFORMIN HYDROCHLORIDE
     Dosage: TABLET, 1000 MG (MILLIGRAM)
  10. SIMVASTATIN [Concomitant]
     Active Substance: SIMVASTATIN
     Dosage: FILM-COATED TABLET, 40 MG (MILLIGRAM)
  11. SITAGLIPTIN [Concomitant]
     Active Substance: SITAGLIPTIN
     Dosage: TABLET, 100 MG (MILLIGRAM)
  12. FLURAZEPAM [Concomitant]
     Active Substance: FLURAZEPAM HYDROCHLORIDE
     Dosage: CAPSULE, 15 MG (MILLIGRAM)

REACTIONS (6)
  - Dysarthria [Recovering/Resolving]
  - Confusional state [Recovering/Resolving]
  - Somnolence [Recovering/Resolving]
  - Tremor [Recovering/Resolving]
  - Muscle rigidity [Recovering/Resolving]
  - Reduced facial expression [Recovering/Resolving]

NARRATIVE: CASE EVENT DATE: 20240101
